FAERS Safety Report 23228262 (Version 2)
Quarter: 2023Q4

REPORT INFORMATION
  Report Type: Report from Study
  Country: US (occurrence: US)
  Receive Date: 20231125
  Receipt Date: 20231130
  Transmission Date: 20240109
  Serious: Yes (Hospitalization, Other)
  Sender: FDA-Public Use
  Company Number: US-UCBSA-2023055539

PATIENT
  Age: 12 Year
  Sex: Male

DRUGS (1)
  1. NAYZILAM [Suspect]
     Active Substance: MIDAZOLAM
     Indication: Seizure
     Dosage: INTRANASAL
     Dates: start: 2021

REACTIONS (5)
  - Status epilepticus [Unknown]
  - Anaphylactic reaction [Unknown]
  - Oxygen saturation decreased [Unknown]
  - Adverse drug reaction [Unknown]
  - Drug ineffective [Unknown]

NARRATIVE: CASE EVENT DATE: 20220101
